FAERS Safety Report 11210665 (Version 1)
Quarter: 2015Q2

REPORT INFORMATION
  Report Type: Spontaneous
  Country: US (occurrence: US)
  Receive Date: 20150622
  Receipt Date: 20150622
  Transmission Date: 20150821
  Serious: No
  Sender: FDA-Public Use
  Company Number: US-SA-2015SA004811

PATIENT
  Age: 58 Year
  Sex: Female

DRUGS (4)
  1. HECTOROL [Suspect]
     Active Substance: DOXERCALCIFEROL
     Indication: CHRONIC KIDNEY DISEASE
     Route: 065
  2. SENSIPAR [Concomitant]
     Active Substance: CINACALCET HYDROCHLORIDE
  3. RENVELA [Suspect]
     Active Substance: SEVELAMER CARBONATE
     Indication: CHRONIC KIDNEY DISEASE
     Route: 048
  4. HECTOROL [Suspect]
     Active Substance: DOXERCALCIFEROL
     Indication: CHRONIC KIDNEY DISEASE
     Route: 065

REACTIONS (2)
  - Blood parathyroid hormone abnormal [Unknown]
  - Hyperphosphataemia [Unknown]

NARRATIVE: CASE EVENT DATE: 201412
